FAERS Safety Report 17210085 (Version 3)
Quarter: 2020Q2

REPORT INFORMATION
  Report Type: Spontaneous
  Country: US (occurrence: US)
  Receive Date: 20191227
  Receipt Date: 20200630
  Transmission Date: 20200713
  Serious: No
  Sender: FDA-Public Use
  Company Number: US-INDIVIOR LIMITED-INDV-122222-2019

PATIENT
  Age: 57 Year
  Sex: Male

DRUGS (2)
  1. SUBLOCADE [Suspect]
     Active Substance: BUPRENORPHINE
     Indication: DRUG DEPENDENCE
     Dosage: 300 MILLIGRAM, QMO
     Route: 058
     Dates: start: 20191024
  2. SUBLOCADE [Suspect]
     Active Substance: BUPRENORPHINE
     Dosage: 300 MILLIGRAM, QMO
     Route: 058
     Dates: start: 202004

REACTIONS (13)
  - Injection site erythema [Unknown]
  - Drug ineffective [Unknown]
  - Injection site pain [Not Recovered/Not Resolved]
  - Drug withdrawal syndrome [Recovered/Resolved]
  - Injection site scab [Not Recovered/Not Resolved]
  - Injection site induration [Not Recovered/Not Resolved]
  - Malaise [Unknown]
  - Lack of administration site rotation [Recovered/Resolved]
  - Pharyngeal swelling [Unknown]
  - Injection site pruritus [Unknown]
  - Dyspnoea [Unknown]
  - Injection site swelling [Not Recovered/Not Resolved]
  - Drug dependence [Recovered/Resolved]

NARRATIVE: CASE EVENT DATE: 2019
